FAERS Safety Report 19494768 (Version 1)
Quarter: 2021Q3

REPORT INFORMATION
  Report Type: Spontaneous
  Country: CN (occurrence: CN)
  Receive Date: 20210705
  Receipt Date: 20210705
  Transmission Date: 20211014
  Serious: Yes (Other)
  Sender: FDA-Public Use
  Company Number: NVSC2021CN147279

PATIENT
  Age: 34 Year
  Sex: Male

DRUGS (2)
  1. PEMBROLIZUMAB. [Suspect]
     Active Substance: PEMBROLIZUMAB
     Indication: ALVEOLAR SOFT PART SARCOMA
     Dosage: UNK, CYCLIC (2 CYCLES)
     Route: 065
  2. PAZOPANIB [Suspect]
     Active Substance: PAZOPANIB
     Indication: ALVEOLAR SOFT PART SARCOMA
     Dosage: UNK, CYCLIC (2 CYCLES)
     Route: 065

REACTIONS (1)
  - Myelosuppression [Unknown]
